FAERS Safety Report 19770954 (Version 2)
Quarter: 2021Q3

REPORT INFORMATION
  Report Type: Spontaneous
  Country: US (occurrence: US)
  Receive Date: 20210831
  Receipt Date: 20210831
  Transmission Date: 20211014
  Serious: Yes (Other)
  Sender: FDA-Public Use
  Company Number: US-AUROBINDO-AUR-APL-2021-036014

PATIENT
  Age: 49 Year
  Sex: Male

DRUGS (10)
  1. DEXAMETHASONE INJECTION [Suspect]
     Active Substance: DEXAMETHASONE
     Indication: MUCOSAL INFLAMMATION
     Dosage: UNK
     Route: 042
  2. KETAMINE HYDROCHLORIDE INJECTION [Suspect]
     Active Substance: KETAMINE HYDROCHLORIDE
     Indication: MUCOSAL INFLAMMATION
     Dosage: UNK
     Route: 048
  3. KETAMINE HYDROCHLORIDE INJECTION [Suspect]
     Active Substance: KETAMINE HYDROCHLORIDE
     Dosage: 10 MILLIGRAM, EVERY FOUR HOUR (5MG PER NOSTRIL)
     Route: 045
  4. HYDROMORPHONE [Suspect]
     Active Substance: HYDROMORPHONE
     Indication: MUCOSAL INFLAMMATION
     Dosage: UNK
     Route: 042
  5. OXYCODONE [Suspect]
     Active Substance: OXYCODONE
     Indication: MUCOSAL INFLAMMATION
     Dosage: 45 MILLIGRAM(MORPHINE EQUIVALENT DAILY DOSE)
     Route: 065
  6. KETAMINE HYDROCHLORIDE INJECTION [Suspect]
     Active Substance: KETAMINE HYDROCHLORIDE
     Dosage: 50 MILLIGRAM PER MILLILITRE
     Route: 045
  7. KETAMINE HYDROCHLORIDE INJECTION [Suspect]
     Active Substance: KETAMINE HYDROCHLORIDE
     Dosage: 20 MILLIGRAM, FOUR TIMES/DAY (10MG PER NOSTRIL)
     Route: 045
  8. SODIUM BICARBONATE. [Suspect]
     Active Substance: SODIUM BICARBONATE
     Indication: MUCOSAL INFLAMMATION
     Dosage: UNK
     Route: 065
  9. SODIUM CHLORIDE. [Suspect]
     Active Substance: SODIUM CHLORIDE
     Indication: MUCOSAL INFLAMMATION
     Dosage: UNK
     Route: 065
  10. SODIUM MONOFLUOROPHOSPHATE. [Suspect]
     Active Substance: SODIUM MONOFLUOROPHOSPHATE
     Indication: MUCOSAL INFLAMMATION
     Dosage: UNK
     Route: 048

REACTIONS (7)
  - Burning sensation [Unknown]
  - Somnolence [Unknown]
  - Product use in unapproved indication [Unknown]
  - Drug ineffective [Unknown]
  - Confusional state [Unknown]
  - Product use issue [Unknown]
  - Hallucination, visual [Unknown]
